FAERS Safety Report 20711523 (Version 1)
Quarter: 2022Q2

REPORT INFORMATION
  Report Type: Spontaneous
  Country: US (occurrence: US)
  Receive Date: 20220414
  Receipt Date: 20220414
  Transmission Date: 20220721
  Serious: No
  Sender: FDA-Public Use
  Company Number: US-PFIZER INC-202101295217

PATIENT
  Age: 64 Year
  Sex: Male
  Weight: 111.11 kg

DRUGS (1)
  1. INLYTA [Suspect]
     Active Substance: AXITINIB
     Indication: Renal cancer
     Dosage: 2 MG, 2X/DAY
     Route: 048
     Dates: start: 20190502, end: 202109

REACTIONS (1)
  - Fatigue [Unknown]
